FAERS Safety Report 4532188-6 (Version None)
Quarter: 2004Q4

REPORT INFORMATION
  Report Type: 
  Country: None (occurrence: None)
  Receive Date: 20041217
  Receipt Date: 20041208
  Transmission Date: 20050328
  Serious: Yes (Other)
  Sender: FDA-Public Use
  Company Number: 2004107124

PATIENT
  Age: 70 Year
  Sex: Male

DRUGS (4)
  1. SILDENAFIL (SILDENAFIL) [Suspect]
     Indication: ERECTILE DYSFUNCTION
     Dosage: 50 MG, ORAL
     Route: 048
     Dates: start: 20041117, end: 20041117
  2. RAMIPRIL [Concomitant]
  3. SIMVASTATIN [Concomitant]
  4. ACETAMINOPHEN [Concomitant]

REACTIONS (2)
  - GASTRIC HAEMORRHAGE [None]
  - VOMITING [None]
